FAERS Safety Report 9242984 (Version 1)
Quarter: 2013Q2

REPORT INFORMATION
  Report Type: Spontaneous
  Country: VE (occurrence: VE)
  Receive Date: 20130419
  Receipt Date: 20130419
  Transmission Date: 20140414
  Serious: Yes (Hospitalization)
  Sender: FDA-Public Use
  Company Number: VE-B.I. PHARMACEUTICALS,INC./RIDGEFIELD-2013-RA-00079RA

PATIENT
  Age: 76 Year
  Sex: Female

DRUGS (2)
  1. PRADAXA [Suspect]
     Indication: KNEE ARTHROPLASTY
     Dosage: 220 MG
     Route: 048
     Dates: start: 20130309, end: 20130321
  2. CLEXANE [Concomitant]
     Route: 048
     Dates: start: 20130305, end: 20130308

REACTIONS (1)
  - Pulmonary embolism [Recovered/Resolved]
